FAERS Safety Report 6866159-1 (Version None)
Quarter: 2010Q3

REPORT INFORMATION
  Report Type: 
  Country: None (occurrence: None)
  Receive Date: 20100722
  Receipt Date: 20100719
  Transmission Date: 20110219
  Serious: Yes (Hospitalization)
  Sender: FDA-Public Use
  Company Number: US-SHIRE-ALL1-2010-01571

PATIENT

DRUGS (13)
  1. FOSRENOL [Suspect]
     Indication: HYPERPHOSPHATAEMIA
     Dosage: 2000 MG WITH MEALS + 1000MG WITH SNACKS
     Route: 048
     Dates: start: 20091008
  2. ZEMPLAR [Concomitant]
     Indication: PRODUCT USED FOR UNKNOWN INDICATION
     Dosage: 2 UG, U3X PER WEEK
     Route: 048
     Dates: start: 20100713
  3. SENSIPAR [Concomitant]
     Indication: PRODUCT USED FOR UNKNOWN INDICATION
     Dosage: 60 MG, 1X/DAY:QD
     Route: 048
     Dates: start: 20100713
  4. LANTUS [Concomitant]
     Indication: PRODUCT USED FOR UNKNOWN INDICATION
     Dosage: 55 IU, 1X/DAY:QD QAM
     Route: 058
     Dates: start: 20100601
  5. LANTUS [Concomitant]
     Dosage: 55 IU, 1X/DAY:QD QPM
     Dates: start: 20100426
  6. TARKA [Concomitant]
     Indication: PRODUCT USED FOR UNKNOWN INDICATION
     Dosage: 2/180, 1X/DAY:QD
     Route: 048
     Dates: start: 20100601
  7. NOVOLOG [Concomitant]
     Indication: PRODUCT USED FOR UNKNOWN INDICATION
     Dosage: UNK, 3X/DAY:TID
     Route: 058
     Dates: start: 20100601
  8. TUMS                               /00108001/ [Concomitant]
     Indication: PRODUCT USED FOR UNKNOWN INDICATION
     Dosage: 2 TABS WITH MEALS
     Route: 048
     Dates: start: 20100525
  9. REGLAN [Concomitant]
     Indication: PRODUCT USED FOR UNKNOWN INDICATION
     Dosage: 10 MG, 4X/DAY:QID
     Route: 048
     Dates: start: 20100521
  10. OMEPRAZOLE [Concomitant]
     Indication: PRODUCT USED FOR UNKNOWN INDICATION
     Dosage: 20 G, 1X/DAY:QD
     Route: 048
     Dates: start: 20100308
  11. VITAMIN A [Concomitant]
     Indication: PRODUCT USED FOR UNKNOWN INDICATION
     Dosage: 1 TABLET, 1X/DAY:QD
     Dates: start: 20090917
  12. GENTAMYCIN                         /00047101/ [Concomitant]
     Indication: PRODUCT USED FOR UNKNOWN INDICATION
     Dosage: 15 G, 1X/DAY:QD
     Route: 061
     Dates: start: 20090528
  13. VYTORIN [Concomitant]
     Indication: PRODUCT USED FOR UNKNOWN INDICATION
     Dosage: 10/80 QHS
     Route: 048
     Dates: start: 20090525

REACTIONS (3)
  - BACK DISORDER [None]
  - NAUSEA [None]
  - VOMITING [None]
